FAERS Safety Report 6628630-7 (Version None)
Quarter: 2010Q1

REPORT INFORMATION
  Report Type: 
  Country: None (occurrence: None)
  Receive Date: 20100310
  Receipt Date: 20100310
  Transmission Date: 20100710
  Serious: Yes (Other)
  Sender: FDA-Public Use
  Company Number: None

PATIENT
  Sex: Male
  Weight: 113.3993 kg

DRUGS (1)
  1. CELEXA [Suspect]
     Dosage: 40 MG DAILY PO
     Route: 048
     Dates: end: 20100304

REACTIONS (3)
  - ANXIETY [None]
  - IRRITABILITY [None]
  - PRODUCT SUBSTITUTION ISSUE [None]
